FAERS Safety Report 18623960 (Version 1)
Quarter: 2020Q4

REPORT INFORMATION
  Report Type: Other
  Country: US (occurrence: US)
  Receive Date: 20201216
  Receipt Date: 20201216
  Transmission Date: 20210114
  Serious: Yes (Life-Threatening, Hospitalization, Other)
  Sender: FDA-Public Use
  Company Number: US-BRECKENRIDGE PHARMACEUTICAL, INC.-2103055

PATIENT
  Age: 1 Day
  Sex: Female

DRUGS (1)
  1. METHYLERGONOVINE [Suspect]
     Active Substance: METHYLERGONOVINE
     Route: 030

REACTIONS (7)
  - Apnoea [None]
  - Bradycardia neonatal [None]
  - Accidental exposure to product [None]
  - White blood cell count increased [None]
  - Metabolic acidosis [None]
  - Neonatal respiratory acidosis [None]
  - Bandaemia [None]
